FAERS Safety Report 16890478 (Version 3)
Quarter: 2019Q4

REPORT INFORMATION
  Report Type: Spontaneous
  Country: US (occurrence: US)
  Receive Date: 20191007
  Receipt Date: 20191223
  Transmission Date: 20200122
  Serious: Yes (Hospitalization)
  Sender: FDA-Public Use
  Company Number: US-JNJFOC-20191008491

PATIENT
  Sex: Male

DRUGS (1)
  1. ZYTIGA [Suspect]
     Active Substance: ABIRATERONE ACETATE
     Indication: PRODUCT USED FOR UNKNOWN INDICATION
     Dosage: 250MG 4 TABLETS ONCE DAILY
     Route: 048

REACTIONS (5)
  - Muscle strain [Unknown]
  - Hospitalisation [Unknown]
  - Nausea [Unknown]
  - Sinus disorder [Unknown]
  - Laryngitis [Unknown]
